FAERS Safety Report 14178950 (Version 1)
Quarter: 2017Q4

REPORT INFORMATION
  Report Type: Spontaneous
  Country: US (occurrence: US)
  Receive Date: 20171110
  Receipt Date: 20171110
  Transmission Date: 20180321
  Serious: Yes (Hospitalization)
  Sender: FDA-Public Use
  Company Number: US-BRAINTREE LABORATORIES-170622

PATIENT
  Age: 66 Year
  Sex: Female
  Weight: 45.81 kg

DRUGS (1)
  1. GOLYTELY [Suspect]
     Active Substance: POLYETHYLENE GLYCOL 3350\POTASSIUM CHLORIDE\SODIUM BICARBONATE\SODIUM CHLORIDE\SODIUM SULFATE ANHYDROUS
     Indication: OFF LABEL USE
     Dosage: 4L
     Route: 048
     Dates: start: 20171030, end: 20171030

REACTIONS (4)
  - Headache [None]
  - Abdominal pain [None]
  - Faeces discoloured [None]
  - Abdominal distension [None]

NARRATIVE: CASE EVENT DATE: 20171030
